FAERS Safety Report 5923119-2 (Version None)
Quarter: 2008Q4

REPORT INFORMATION
  Report Type: 
  Country: None (occurrence: None)
  Receive Date: 20081020
  Receipt Date: 20081014
  Transmission Date: 20090506
  Serious: Yes (Other)
  Sender: FDA-Public Use
  Company Number: US-RANBAXY-2008US-18710

PATIENT

DRUGS (1)
  1. ISOTRETINOIN [Suspect]
     Indication: ACNE
     Dosage: 30 MG, BID
     Route: 048
     Dates: start: 20080701, end: 20080723

REACTIONS (8)
  - CHILLS [None]
  - FATIGUE [None]
  - HEADACHE [None]
  - HEPATIC ENZYME INCREASED [None]
  - LYMPHOCYTE COUNT INCREASED [None]
  - MONONUCLEOSIS HETEROPHILE TEST POSITIVE [None]
  - OROPHARYNGEAL PAIN [None]
  - PYREXIA [None]
